FAERS Safety Report 13907051 (Version 1)
Quarter: 2017Q3

REPORT INFORMATION
  Report Type: Spontaneous
  Country: GB (occurrence: GB)
  Receive Date: 20170825
  Receipt Date: 20170825
  Transmission Date: 20171127
  Serious: Yes (Disabling, Congenital Anomaly)
  Sender: FDA-Public Use
  Company Number: PHFR2017GB006840

PATIENT
  Sex: Female

DRUGS (5)
  1. OMEPRAZOLE. [Suspect]
     Active Substance: OMEPRAZOLE
     Indication: FOETAL EXPOSURE DURING PREGNANCY
     Dosage: 20 MG, QD, TAKEN BY MOM THROUGH OUT THE PREGNANCY
     Route: 064
  2. CITALOPRAM [Suspect]
     Active Substance: CITALOPRAM HYDROBROMIDE
     Indication: FOETAL EXPOSURE DURING PREGNANCY
     Dosage: 40 MG, QD,TAKEN BY MOM THROUGHOUT
     Route: 064
  3. GABAPENTIN. [Suspect]
     Active Substance: GABAPENTIN
     Indication: FOETAL EXPOSURE DURING PREGNANCY
     Dosage: 600 MG, TID,TAKEN BY MOM THROUGHOUT PREGNANCY
     Route: 064
  4. DIHYDROCODEINE [Suspect]
     Active Substance: DIHYDROCODEINE
     Indication: FOETAL EXPOSURE DURING PREGNANCY
     Dosage: 90 MG, QD,TAKEN BY MOM THROUGHOUT THE PREGNANCY
     Route: 064
  5. QUETIAPINE. [Suspect]
     Active Substance: QUETIAPINE
     Indication: FOETAL EXPOSURE DURING PREGNANCY
     Dosage: 75 MG, QD,TAKEN BY MOM THROUGHOUT PREGNANCY
     Route: 064

REACTIONS (1)
  - Congenital thrombocytopenia [Recovering/Resolving]
